FAERS Safety Report 21297001 (Version 1)
Quarter: 2022Q3

REPORT INFORMATION
  Report Type: Spontaneous
  Country: FR (occurrence: FR)
  Receive Date: 20220906
  Receipt Date: 20220906
  Transmission Date: 20221027
  Serious: Yes (Hospitalization)
  Sender: FDA-Public Use
  Company Number: None

PATIENT
  Age: 72 Year
  Sex: Female
  Weight: 56 kg

DRUGS (2)
  1. INDAPAMIDE [Suspect]
     Active Substance: INDAPAMIDE
     Indication: Hypertension
     Dosage: LP, UNIT DOSE : 1.5 MG, FREQUENCY TIME : 1 DAYS, THERAPY DURATION : 2 DAYS
     Route: 065
     Dates: start: 20220810, end: 20220812
  2. TARKA [Suspect]
     Active Substance: TRANDOLAPRIL\VERAPAMIL HYDROCHLORIDE
     Indication: Hypertension
     Dosage: 240 MILLIGRAM DAILY; 240 MG / 2 MG,  STRENGTH: 240 MG/4 MG , THERAPY DURATION : 2 DAYS
     Route: 065
     Dates: start: 20220810, end: 20220812

REACTIONS (1)
  - Angioedema [Recovered/Resolved]

NARRATIVE: CASE EVENT DATE: 20220812
